FAERS Safety Report 4973998-0 (Version None)
Quarter: 2006Q2

REPORT INFORMATION
  Report Type: 
  Country: None (occurrence: None)
  Receive Date: 20060417
  Receipt Date: 20060406
  Transmission Date: 20061013
  Serious: Yes (Hospitalization)
  Sender: FDA-Public Use
  Company Number: FR-BRISTOL-MYERS SQUIBB COMPANY-13340583

PATIENT
  Age: 61 Year
  Sex: Male

DRUGS (5)
  1. ELISOR TABS [Suspect]
     Route: 048
     Dates: start: 20050824, end: 20060211
  2. TAHOR [Suspect]
     Dates: start: 20060127, end: 20060211
  3. MOPRAL [Suspect]
     Route: 042
     Dates: start: 20060119, end: 20060211
  4. NEXIUM [Suspect]
     Route: 048
     Dates: start: 20050824, end: 20060211
  5. LASILIX [Concomitant]
     Indication: HYPERTENSION
     Route: 048

REACTIONS (2)
  - CORONARY ARTERY SURGERY [None]
  - THROMBOCYTOPENIA [None]
